FAERS Safety Report 5604311-3 (Version None)
Quarter: 2008Q1

REPORT INFORMATION
  Report Type: 
  Country: None (occurrence: None)
  Receive Date: 20080128
  Receipt Date: 20080124
  Transmission Date: 20080703
  Serious: Yes (Hospitalization)
  Sender: FDA-Public Use
  Company Number: A0700345A

PATIENT
  Age: 54 Year
  Sex: Male
  Weight: 82.5 kg

DRUGS (4)
  1. LAPATINIB [Suspect]
     Dosage: 1500MG PER DAY
     Route: 048
     Dates: start: 20071211, end: 20071221
  2. CISPLATIN [Concomitant]
     Dates: start: 20071218
  3. KEVATRIL [Concomitant]
  4. DEXAMETHASONE TAB [Concomitant]

REACTIONS (1)
  - HEPATIC ENZYME INCREASED [None]
